FAERS Safety Report 12271211 (Version 1)
Quarter: 2016Q2

REPORT INFORMATION
  Report Type: Report from Study
  Country: US (occurrence: US)
  Receive Date: 20160415
  Receipt Date: 20160415
  Transmission Date: 20160815
  Serious: No
  Sender: FDA-Public Use
  Company Number: ADR-2015-00806

PATIENT
  Age: 52 Year
  Sex: Male

DRUGS (7)
  1. TIZANIDINE. [Suspect]
     Active Substance: TIZANIDINE
  2. DILAUDID [Suspect]
     Active Substance: HYDROMORPHONE HYDROCHLORIDE
     Dosage: 0.3249 MG/DAY
     Route: 037
     Dates: end: 20150403
  3. OXYCODONE ER [Suspect]
     Active Substance: OXYCODONE
  4. DILAUDID [Suspect]
     Active Substance: HYDROMORPHONE HYDROCHLORIDE
     Dosage: 0.2996 MG/DAY
     Route: 037
     Dates: start: 20150403
  5. COMPOUNDED BACLOFEN [Suspect]
     Active Substance: BACLOFEN
     Dosage: 243.67 MCG/DAY
     Route: 037
     Dates: end: 20150403
  6. OXYCODONE HYDROCHLORIDE. [Suspect]
     Active Substance: OXYCODONE HYDROCHLORIDE
  7. COMPOUNDED BACLOFEN [Suspect]
     Active Substance: BACLOFEN
     Dosage: 224.69 MCG/DAY
     Route: 037
     Dates: start: 20150403

REACTIONS (2)
  - Sedation [Recovered/Resolved]
  - Adverse drug reaction [Recovered/Resolved]
